FAERS Safety Report 4346063-3 (Version None)
Quarter: 2004Q1

REPORT INFORMATION
  Report Type: 
  Country: None (occurrence: None)
  Receive Date: 20040325
  Receipt Date: 20031202
  Transmission Date: 20041129
  Serious: No
  Sender: FDA-Public Use
  Company Number: USA031253760

PATIENT
  Age: 80 Year
  Sex: Female

DRUGS (8)
  1. FORTEO [Suspect]
     Indication: OSTEOPOROSIS
     Dates: start: 20031124
  2. EVISTA [Concomitant]
  3. MIACALCIN [Concomitant]
  4. PREVACID [Concomitant]
  5. LEXAPRO [Concomitant]
  6. CALCIUM [Concomitant]
  7. THYROID TAB [Concomitant]
  8. PAIN KILLERS [Concomitant]

REACTIONS (1)
  - TREMOR [None]
